FAERS Safety Report 6516414-X (Version None)
Quarter: 2009Q4

REPORT INFORMATION
  Report Type: 
  Country: None (occurrence: None)
  Receive Date: 20091223
  Receipt Date: 20091218
  Transmission Date: 20100525
  Serious: Yes (Hospitalization)
  Sender: FDA-Public Use
  Company Number: B0611877A

PATIENT
  Sex: Female
  Weight: 53 kg

DRUGS (5)
  1. TYKERB [Suspect]
     Indication: BREAST CANCER
     Dosage: 1250MG PER DAY
     Route: 048
     Dates: start: 20091020, end: 20091105
  2. XELODA [Suspect]
     Indication: BREAST CANCER
     Dosage: 1200MG PER DAY
     Route: 048
     Dates: start: 20091020, end: 20091105
  3. TOREMIFENE CITRATE [Concomitant]
     Route: 048
     Dates: start: 20091106
  4. RIMATIL [Concomitant]
     Indication: RHEUMATOID ARTHRITIS
     Route: 048
     Dates: start: 20091106
  5. HUMULIN R [Concomitant]
     Indication: DIABETES MELLITUS
     Route: 058

REACTIONS (2)
  - CARDIAC FAILURE [None]
  - PAINFUL RESPIRATION [None]
